FAERS Safety Report 25509819 (Version 2)
Quarter: 2025Q3

REPORT INFORMATION
  Report Type: Spontaneous
  Country: US (occurrence: US)
  Receive Date: 20250703
  Receipt Date: 20250820
  Transmission Date: 20251021
  Serious: No
  Sender: Kenvue
  Company Number: US-KENVUE-20250611282

PATIENT
  Sex: Female

DRUGS (8)
  1. WOMENS ROGAINE UNSCENTED [Suspect]
     Active Substance: MINOXIDIL
     Indication: Alopecia
     Dosage: 1/2 CUP DOSING CAP , ONCE A DAY
     Route: 061
     Dates: start: 202502
  2. METFORMIN HYDROCHLORIDE [Concomitant]
     Active Substance: METFORMIN HYDROCHLORIDE
     Indication: Alopecia
     Route: 065
     Dates: start: 202501
  3. CLOBETASOL [Concomitant]
     Active Substance: CLOBETASOL
     Indication: Alopecia
     Route: 065
     Dates: start: 202501
  4. Propionate [Concomitant]
     Indication: Product used for unknown indication
     Route: 065
  5. MINOXIDIL [Concomitant]
     Active Substance: MINOXIDIL
     Indication: Alopecia
     Route: 065
  6. ATORVASTATIN [Concomitant]
     Active Substance: ATORVASTATIN
     Indication: Blood cholesterol increased
     Route: 065
     Dates: start: 2023
  7. VITAMIN D3 [Concomitant]
     Active Substance: CHOLECALCIFEROL
     Indication: Product used for unknown indication
     Route: 065
     Dates: start: 2023
  8. FERROUS SULFATE [Concomitant]
     Active Substance: FERROUS SULFATE
     Indication: Blood iron
     Route: 065

REACTIONS (1)
  - Drug ineffective [Unknown]
